FAERS Safety Report 16339706 (Version 1)
Quarter: 2019Q2

REPORT INFORMATION
  Report Type: Report from Study
  Country: US (occurrence: US)
  Receive Date: 20190521
  Receipt Date: 20190521
  Transmission Date: 20190711
  Serious: Yes (Other)
  Sender: FDA-Public Use
  Company Number: PHEH2019US021046

PATIENT
  Age: 40 Year
  Sex: Female

DRUGS (1)
  1. COSENTYX [Suspect]
     Active Substance: SECUKINUMAB
     Indication: PSORIATIC ARTHROPATHY
     Dosage: 150 MG, Q4W (EVERY FOUR WEEKS)
     Route: 058

REACTIONS (5)
  - Contusion [Recovering/Resolving]
  - Burning sensation [Recovering/Resolving]
  - Multiple fractures [Recovering/Resolving]
  - Road traffic accident [Recovering/Resolving]
  - Tooth fracture [Recovering/Resolving]

NARRATIVE: CASE EVENT DATE: 20190503
